FAERS Safety Report 13684852 (Version 1)
Quarter: 2017Q2

REPORT INFORMATION
  Report Type: Spontaneous
  Country: US (occurrence: US)
  Receive Date: 20170623
  Receipt Date: 20170623
  Transmission Date: 20170830
  Serious: No
  Sender: FDA-Public Use
  Company Number: US-INTERPRAG-PM-OCA2017-00259

PATIENT

DRUGS (3)
  1. URSO [Concomitant]
     Active Substance: URSODIOL
     Dosage: UNK
     Dates: start: 201507
  2. OCALIVA [Suspect]
     Active Substance: OBETICHOLIC ACID
     Indication: BILIARY CIRRHOSIS PRIMARY
  3. VITAMIN D                          /00107901/ [Concomitant]
     Active Substance: ERGOCALCIFEROL
     Indication: VITAMIN D DEFICIENCY

REACTIONS (12)
  - Myalgia [Unknown]
  - Abdominal distension [Unknown]
  - Memory impairment [Unknown]
  - Fatigue [Unknown]
  - Pruritus [Unknown]
  - Abdominal pain upper [Unknown]
  - Nausea [Unknown]
  - Haemangioma of liver [Unknown]
  - Constipation [Unknown]
  - Swelling [Unknown]
  - Headache [Unknown]
  - Arthralgia [Unknown]
